FAERS Safety Report 8757834 (Version 2)
Quarter: 2013Q1

REPORT INFORMATION
  Report Type: Report from Study
  Country: JP (occurrence: JP)
  Receive Date: 20120828
  Receipt Date: 20130306
  Transmission Date: 20140127
  Serious: Yes (Death)
  Sender: FDA-Public Use
  Company Number: JP-ROCHE-GNE306618

PATIENT
  Sex: 0

DRUGS (1)
  1. ALTEPLASE [Suspect]
     Indication: CEREBROVASCULAR ACCIDENT
     Dosage: 0.6 MG/KG, SINGLE
     Route: 040
     Dates: start: 200510, end: 200807

REACTIONS (2)
  - Brain herniation [Fatal]
  - Cerebrovascular accident [Fatal]
